FAERS Safety Report 9314277 (Version 1)
Quarter: 2013Q2

REPORT INFORMATION
  Report Type: Spontaneous
  Country: US (occurrence: None)
  Receive Date: 20130524
  Receipt Date: 20130524
  Transmission Date: 20140414
  Serious: Yes (Life-Threatening)
  Sender: FDA-Public Use
  Company Number: None

PATIENT
  Age: 54 Year
  Sex: Male

DRUGS (2)
  1. RIBAVIRIN [Suspect]
     Dosage: 400MG BID PO
     Route: 048
     Dates: start: 20130412, end: 20130520
  2. PEGASYS 180MCG GENENTECH [Suspect]
     Dosage: 180MCG  QW  SQ
     Route: 058
     Dates: start: 20130412, end: 20130610

REACTIONS (1)
  - Adenocarcinoma [None]
